FAERS Safety Report 4271680-9 (Version None)
Quarter: 2004Q1

REPORT INFORMATION
  Report Type: 
  Country: None (occurrence: None)
  Receive Date: 20040115
  Receipt Date: 20020527
  Transmission Date: 20041129
  Serious: Yes (Other)
  Sender: FDA-Public Use
  Company Number: US-BRISTOL-MYERS SQUIBB COMPANY-11880721

PATIENT
  Age: 68 Year
  Sex: Male

DRUGS (8)
  1. ATORVASTATIN [Suspect]
     Dosage: MOST RECENT DOSE PRIOR TO THE EVENT WAS ON 20-MAY-2002.
     Route: 048
     Dates: start: 20010605
  2. GATIFLOXACIN [Suspect]
     Route: 048
     Dates: start: 20010619, end: 20020520
  3. GLUCOTROL [Concomitant]
     Route: 048
     Dates: end: 20020520
  4. METOPROLOL [Concomitant]
     Route: 048
  5. ASPIRIN [Concomitant]
     Route: 048
  6. GLUCOPHAGE [Concomitant]
     Route: 048
  7. ALTACE [Concomitant]
     Route: 048
  8. AVANDIA [Concomitant]
     Route: 048
     Dates: start: 20020521

REACTIONS (4)
  - GLOBULINS INCREASED [None]
  - GLYCOSYLATED HAEMOGLOBIN INCREASED [None]
  - HAEMOGLOBIN DECREASED [None]
  - HYPERGLYCAEMIA [None]
